FAERS Safety Report 16886779 (Version 1)
Quarter: 2019Q4

REPORT INFORMATION
  Report Type: Spontaneous
  Country: TR (occurrence: TR)
  Receive Date: 20191004
  Receipt Date: 20191004
  Transmission Date: 20200122
  Serious: No
  Sender: FDA-Public Use
  Company Number: TR-TOLMAR, INC.-19TR000165

PATIENT
  Age: 72 Year
  Sex: Male

DRUGS (1)
  1. ELIGARD [Suspect]
     Active Substance: LEUPROLIDE ACETATE
     Indication: PROSTATE CANCER
     Dosage: 22.5 MILLIGRAM, EVERY 3 MONTHS
     Route: 058
     Dates: start: 20170911

REACTIONS (2)
  - Intercepted product preparation error [None]
  - Wrong technique in product usage process [None]

NARRATIVE: CASE EVENT DATE: 20190904
